FAERS Safety Report 25612718 (Version 2)
Quarter: 2025Q3

REPORT INFORMATION
  Report Type: Spontaneous
  Country: US (occurrence: US)
  Receive Date: 20250728
  Receipt Date: 20250828
  Transmission Date: 20251020
  Serious: Yes (Hospitalization)
  Sender: ROCHE
  Company Number: US-ROCHE-10000345650

PATIENT
  Age: 8 Year
  Sex: Male

DRUGS (7)
  1. HEMLIBRA [Suspect]
     Active Substance: EMICIZUMAB-KXWH
     Indication: Factor VIII deficiency
     Dosage: STRENGTH : 150 MG/ML
     Route: 058
     Dates: start: 202303
  2. AMINOCAPROIC ACID [Concomitant]
     Active Substance: AMINOCAPROIC ACID
     Route: 048
  3. AMINOCAPROIC ACID [Concomitant]
     Active Substance: AMINOCAPROIC ACID
     Route: 048
  4. ELOCTATE [Concomitant]
     Active Substance: EFMOROCTOCOG ALFA
     Route: 065
  5. ELOCTATE [Concomitant]
     Active Substance: EFMOROCTOCOG ALFA
     Route: 065
  6. ELOCTATE [Concomitant]
     Active Substance: EFMOROCTOCOG ALFA
     Route: 065
  7. ELOCTATE [Concomitant]
     Active Substance: EFMOROCTOCOG ALFA
     Route: 065

REACTIONS (2)
  - Haemorrhage [Recovered/Resolved]
  - Joint injury [Unknown]

NARRATIVE: CASE EVENT DATE: 20250715
